FAERS Safety Report 7076164-0 (Version None)
Quarter: 2010Q4

REPORT INFORMATION
  Report Type: 
  Country: None (occurrence: None)
  Receive Date: 20101101
  Receipt Date: 20100827
  Transmission Date: 20110411
  Serious: Yes (Other)
  Sender: FDA-Public Use
  Company Number: US-BAYER-201024605NA

PATIENT
  Age: 20 Year
  Sex: Female
  Weight: 54 kg

DRUGS (6)
  1. YASMIN [Suspect]
     Route: 048
     Dates: start: 20080101
  2. YAZ [Suspect]
     Route: 048
     Dates: start: 20080101
  3. KLONOPIN [Concomitant]
     Indication: ANXIETY
     Dosage: UNIT DOSE: 0.5 MG
     Route: 048
  4. ZOLOFT [Concomitant]
     Indication: ANXIETY
     Dosage: UNIT DOSE: 25 MG
     Route: 048
  5. SPRINTEC [Concomitant]
  6. RELPAX [Concomitant]
     Indication: MIGRAINE
     Dates: start: 20090901

REACTIONS (6)
  - CONVULSION [None]
  - DIZZINESS [None]
  - EYE ROLLING [None]
  - GRAND MAL CONVULSION [None]
  - MUSCLE SPASMS [None]
  - PHOTOPSIA [None]
